FAERS Safety Report 4710107-7 (Version None)
Quarter: 2005Q2

REPORT INFORMATION
  Report Type: 
  Country: None (occurrence: None)
  Receive Date: 20050629
  Receipt Date: 20050524
  Transmission Date: 20051028
  Serious: No
  Sender: FDA-Public Use
  Company Number: 05P-163-0301298-00

PATIENT
  Age: 67 Year
  Sex: Female
  Weight: 65.7716 kg

DRUGS (6)
  1. HUMIRA [Suspect]
     Indication: RHEUMATOID ARTHRITIS
     Dosage: 40 MG, 1 IN 2 WK, SUBCUTANEOUS
     Route: 058
     Dates: start: 20030101
  2. DIGOXIN [Concomitant]
  3. ATORVASTATIN CALCIUM [Concomitant]
  4. ATENOLOL [Concomitant]
  5. AMLODIPINE BESYLATE [Concomitant]
  6. TRIAMTERENE [Concomitant]

REACTIONS (1)
  - BRONCHITIS [None]
